FAERS Safety Report 20151480 (Version 4)
Quarter: 2022Q2

REPORT INFORMATION
  Report Type: Spontaneous
  Country: DE (occurrence: DE)
  Receive Date: 20211206
  Receipt Date: 20220414
  Transmission Date: 20220720
  Serious: Yes (Hospitalization, Other)
  Sender: FDA-Public Use
  Company Number: None

PATIENT
  Age: 83 Year
  Sex: Female
  Weight: 69 kg

DRUGS (19)
  1. CITALOPRAM [Suspect]
     Active Substance: CITALOPRAM HYDROBROMIDE
     Indication: Depression
     Dosage: 1-0-0
     Route: 048
  2. FENTANYL [Suspect]
     Active Substance: FENTANYL
     Indication: Scoliosis
     Dosage: FOR 3 DAYS
     Route: 062
  3. MIRTAZAPINE [Suspect]
     Active Substance: MIRTAZAPINE
     Indication: Depression
     Dosage: 0-0-0-2 (INCREASED TO 45 MG AT NIGHT AS OF NOVEMBER 2021)
     Route: 048
  4. QUETIAPINE [Suspect]
     Active Substance: QUETIAPINE
     Indication: Depression
     Dosage: 0-0-0-1
     Route: 048
     Dates: end: 20211119
  5. ALENDRONIC ACID [Concomitant]
     Active Substance: ALENDRONIC ACID
     Indication: Product used for unknown indication
     Dosage: 1 X A WEEK ON SATURDAYS
  6. AMLODIPINE\VALSARTAN [Concomitant]
     Active Substance: AMLODIPINE\VALSARTAN
     Indication: Product used for unknown indication
     Dosage: 1-0-1
     Route: 065
  7. ASPIRIN [Concomitant]
     Active Substance: ASPIRIN
     Indication: Product used for unknown indication
     Dosage: 0-1-0
     Route: 065
  8. ATORVASTATIN [Concomitant]
     Active Substance: ATORVASTATIN
     Indication: Product used for unknown indication
     Dosage: 0-0-1
     Route: 065
  9. BRIMONIDINE [Concomitant]
     Active Substance: BRIMONIDINE TARTRATE
     Indication: Product used for unknown indication
     Dosage: 1-0-1
  10. BRINZO VISION [Concomitant]
     Indication: Product used for unknown indication
     Dosage: 1-0-1
  11. CLOPIDOGREL [Concomitant]
     Active Substance: CLOPIDOGREL BISULFATE
     Indication: Coronary artery disease
     Dosage: 0.5-0-0
     Route: 048
  12. TIMOLOL MALEATE\TRAVOPROST [Concomitant]
     Active Substance: TIMOLOL MALEATE\TRAVOPROST
     Indication: Product used for unknown indication
     Dosage: 0-0-1
     Route: 065
  13. FUROSEMIDE [Concomitant]
     Active Substance: FUROSEMIDE
     Indication: Oedema peripheral
     Dosage: 1/2-0-0 (IN CASE OF EDEMA IN THE LEGS, TAKE AN ADDITIONAL 1/2 TABLET)
  14. IODINE [Concomitant]
     Active Substance: IODINE
     Indication: Product used for unknown indication
     Dosage: 1-0-0
  15. Kalinor [Concomitant]
     Indication: Product used for unknown indication
     Dosage: 1-0-1
  16. NEBIVOLOL [Concomitant]
     Active Substance: NEBIVOLOL
     Indication: Product used for unknown indication
     Dosage: 1/4-0-0
     Route: 065
  17. NITROGLYCERIN [Concomitant]
     Active Substance: NITROGLYCERIN
     Indication: Chest discomfort
     Dosage: AS NECESSARY
  18. PANTOPRAZOLE [Concomitant]
     Active Substance: PANTOPRAZOLE
     Indication: Product used for unknown indication
     Dosage: 2-0-0
  19. Vigantol Vit.D3 [Concomitant]
     Indication: Product used for unknown indication
     Dosage: 0-0-1

REACTIONS (16)
  - Blood pressure fluctuation [Recovering/Resolving]
  - Cholestasis [Recovering/Resolving]
  - Constipation [Recovering/Resolving]
  - Chills [Recovering/Resolving]
  - Decreased appetite [Recovering/Resolving]
  - Gait disturbance [Recovering/Resolving]
  - Cholestasis [Recovering/Resolving]
  - Dry mouth [Recovering/Resolving]
  - Weight decreased [Recovering/Resolving]
  - Dry eye [Recovering/Resolving]
  - Feeling cold [Recovering/Resolving]
  - Hepatocellular injury [Recovering/Resolving]
  - Urinary tract infection [Recovering/Resolving]
  - Hypotonia [Recovering/Resolving]
  - General physical health deterioration [Recovering/Resolving]
  - Night sweats [Not Recovered/Not Resolved]

NARRATIVE: CASE EVENT DATE: 20210101
